FAERS Safety Report 5479109-X (Version None)
Quarter: 2007Q4

REPORT INFORMATION
  Report Type: 
  Country: None (occurrence: None)
  Receive Date: 20071006
  Receipt Date: 20070926
  Transmission Date: 20080405
  Serious: Yes (Other)
  Sender: FDA-Public Use
  Company Number: FR-PFIZER INC-2007081714

PATIENT
  Sex: Female

DRUGS (2)
  1. XALATAN [Suspect]
  2. XALACOM [Suspect]

REACTIONS (2)
  - PARAESTHESIA [None]
  - VISUAL FIELD DEFECT [None]
